FAERS Safety Report 7234169-0 (Version None)
Quarter: 2011Q1

REPORT INFORMATION
  Report Type: 
  Country: None (occurrence: None)
  Receive Date: 20110119
  Receipt Date: 20110111
  Transmission Date: 20110831
  Serious: No
  Sender: FDA-Public Use
  Company Number: US-PFIZER INC-2011007370

PATIENT
  Sex: Female
  Weight: 70.295 kg

DRUGS (3)
  1. STRATTERA [Concomitant]
     Dosage: 10 MG, DAILY
  2. EFFEXOR XR [Suspect]
     Indication: ATTENTION DEFICIT/HYPERACTIVITY DISORDER
     Dosage: 75 MG, DAILY
     Route: 048
     Dates: start: 20020901
  3. NEURONTIN [Concomitant]
     Dosage: 300 MG, 2X/DAY

REACTIONS (7)
  - DRUG INEFFECTIVE [None]
  - SOMNOLENCE [None]
  - FATIGUE [None]
  - LETHARGY [None]
  - DRUG INTOLERANCE [None]
  - FEELING ABNORMAL [None]
  - DISTURBANCE IN ATTENTION [None]
